FAERS Safety Report 10044272 (Version 1)
Quarter: 2014Q1

REPORT INFORMATION
  Report Type: Spontaneous
  Country: IT (occurrence: None)
  Receive Date: 20140326
  Receipt Date: 20140326
  Transmission Date: 20141002
  Serious: Yes (Death)
  Sender: FDA-Public Use
  Company Number: 2247370

PATIENT
  Sex: Female

DRUGS (2)
  1. (CARBOPLATIN) [Suspect]
     Indication: OVARIAN CANCER
     Dosage: AUC 6 MG/ML PER MIN, (NOT OTHERWISE SPECIFIED)
     Route: 042
  2. PACLITAXEL [Suspect]
     Indication: OVARIAN CANCER
     Dosage: /SQ. METER, (NOT OTHERWISE SPECIFIED)
     Route: 042

REACTIONS (2)
  - Intestinal perforation [None]
  - Febrile neutropenia [None]
